FAERS Safety Report 8502382-8 (Version None)
Quarter: 2012Q3

REPORT INFORMATION
  Report Type: 
  Country: None (occurrence: None)
  Receive Date: 20120702
  Receipt Date: 20120618
  Transmission Date: 20120928
  Serious: Yes (Hospitalization)
  Sender: FDA-Public Use
  Company Number: UCM201206-000055

PATIENT
  Age: 36 Year
  Sex: Female

DRUGS (8)
  1. LITHIUM CARBONATE [Suspect]
     Indication: BIPOLAR DISORDER
  2. LOXAPINE [Suspect]
     Indication: BIPOLAR DISORDER
  3. VENLAFAXINE [Suspect]
     Indication: BIPOLAR DISORDER
  4. LAMOTRIGINE [Suspect]
     Indication: BIPOLAR DISORDER
  5. SERTRALINE HYDROCHLORIDE [Suspect]
     Indication: BIPOLAR DISORDER
  6. BUPROPION HCL [Suspect]
     Indication: BIPOLAR DISORDER
  7. TRAZODONE HYDROCHLORIDE [Suspect]
     Indication: BIPOLAR DISORDER
  8. ONDANSETRON [Suspect]
     Indication: URINARY TRACT INFECTION

REACTIONS (3)
  - BLOOD PRESSURE DECREASED [None]
  - NEUROLEPTIC MALIGNANT SYNDROME [None]
  - HEPATOTOXICITY [None]
